FAERS Safety Report 20197965 (Version 4)
Quarter: 2024Q1

REPORT INFORMATION
  Report Type: Other
  Country: CA (occurrence: CA)
  Receive Date: 20211217
  Receipt Date: 20240327
  Transmission Date: 20240410
  Serious: Yes (Other)
  Sender: FDA-Public Use
  Company Number: CA-APOTEX-2021AP046605

PATIENT
  Age: 57 Year
  Sex: Female

DRUGS (16)
  1. ALBUTEROL [Suspect]
     Active Substance: ALBUTEROL
     Indication: Asthma
     Dosage: 100 MICROGRAM
     Route: 065
  2. BACLOFEN [Suspect]
     Active Substance: BACLOFEN
     Indication: Product used for unknown indication
     Dosage: 10 MILLIGRAM
     Route: 065
  3. CITALOPRAM [Suspect]
     Active Substance: CITALOPRAM\CITALOPRAM HYDROBROMIDE
     Indication: Product used for unknown indication
     Dosage: 30 MILLIGRAM
     Route: 065
  4. FLUTICASONE [Suspect]
     Active Substance: FLUTICASONE
     Indication: Asthma
     Dosage: 250 MILLIGRAM
     Route: 065
  5. GABAPENTIN [Suspect]
     Active Substance: GABAPENTIN
     Indication: Neuralgia
     Dosage: 100 MILLIGRAM
     Route: 065
  6. QUETIAPINE [Suspect]
     Active Substance: QUETIAPINE
     Indication: Panic attack
     Dosage: 25 MILLIGRAM
     Route: 065
  7. QUETIAPINE FUMARATE [Suspect]
     Active Substance: QUETIAPINE FUMARATE
     Indication: Panic attack
     Dosage: 25 MILLIGRAM
     Route: 065
  8. ULTRAVATE [Suspect]
     Active Substance: HALOBETASOL PROPIONATE
     Indication: Psoriasis
     Dosage: UNK
     Route: 065
  9. RITUXIMAB [Suspect]
     Active Substance: RITUXIMAB
     Indication: Relapsing-remitting multiple sclerosis
     Dosage: 1000 MILLIGRAM
     Route: 042
  10. RITUXIMAB [Suspect]
     Active Substance: RITUXIMAB
     Dosage: UNK
     Route: 042
  11. RITUXIMAB [Suspect]
     Active Substance: RITUXIMAB
     Dosage: UNK
     Route: 042
  12. RITUXIMAB [Suspect]
     Active Substance: RITUXIMAB
     Dosage: 500.0 MILLIGRAM
     Route: 042
  13. ACETAMINOPHEN [Concomitant]
     Active Substance: ACETAMINOPHEN
     Indication: Product used for unknown indication
     Dosage: 650 MILLIGRAM
     Route: 048
  14. DIMENHYDRINATE [Concomitant]
     Active Substance: DIMENHYDRINATE
     Indication: Product used for unknown indication
     Dosage: 50 MILLIGRAM
     Route: 048
  15. DIPHENHYDRAMINE HYDROCHLORIDE [Concomitant]
     Active Substance: DIPHENHYDRAMINE HYDROCHLORIDE
     Indication: Product used for unknown indication
     Dosage: 50 MILLIGRAM
     Route: 048
  16. METHYLPREDNISOLONE [Concomitant]
     Active Substance: METHYLPREDNISOLONE
     Indication: Product used for unknown indication
     Dosage: 100 MILLIGRAM
     Route: 042

REACTIONS (11)
  - Multiple sclerosis [Recovered/Resolved]
  - Noninfective encephalitis [Recovered/Resolved]
  - Fatigue [Not Recovered/Not Resolved]
  - Oropharyngeal pain [Recovered/Resolved]
  - Multiple sclerosis relapse [Not Recovered/Not Resolved]
  - Muscular weakness [Not Recovered/Not Resolved]
  - Suspected COVID-19 [Recovered/Resolved]
  - Product use in unapproved indication [Recovered/Resolved]
  - Malaise [Recovered/Resolved]
  - Bronchitis [Not Recovered/Not Resolved]
  - Cough [Recovered/Resolved]
